FAERS Safety Report 20348010 (Version 3)
Quarter: 2022Q1

REPORT INFORMATION
  Report Type: Spontaneous
  Country: US (occurrence: US)
  Receive Date: 20220118
  Receipt Date: 20220124
  Transmission Date: 20220423
  Serious: No
  Sender: FDA-Public Use
  Company Number: US-JNJFOC-20220104010

PATIENT
  Age: 47 Year
  Sex: Male

DRUGS (1)
  1. TREMFYA [Suspect]
     Active Substance: GUSELKUMAB
     Indication: Psoriasis
     Route: 058

REACTIONS (5)
  - Device leakage [Unknown]
  - Underdose [Unknown]
  - Psoriasis [Unknown]
  - Accidental exposure to product [Unknown]
  - Poor quality product administered [Unknown]

NARRATIVE: CASE EVENT DATE: 20211229
